FAERS Safety Report 5885135-9 (Version None)
Quarter: 2008Q3

REPORT INFORMATION
  Report Type: 
  Country: None (occurrence: None)
  Receive Date: 20080916
  Receipt Date: 20080911
  Transmission Date: 20090109
  Serious: Yes (Other)
  Sender: FDA-Public Use
  Company Number: US-MERCK-0808USA05269

PATIENT
  Age: 46 Year
  Sex: Female

DRUGS (4)
  1. HYDRODIURIL [Suspect]
     Route: 048
  2. PRINIVIL [Suspect]
     Route: 048
  3. AVALIDE [Suspect]
     Indication: HYPERTENSION
     Route: 048
     Dates: start: 20080504
  4. AVALIDE [Suspect]
     Route: 048

REACTIONS (2)
  - ANAPHYLACTIC REACTION [None]
  - URTICARIA [None]
